FAERS Safety Report 15805496 (Version 1)
Quarter: 2019Q1

REPORT INFORMATION
  Report Type: Spontaneous
  Country: CH (occurrence: CH)
  Receive Date: 20190110
  Receipt Date: 20190110
  Transmission Date: 20190417
  Serious: Yes (Hospitalization)
  Sender: FDA-Public Use
  Company Number: CH-ROCHE-2240172

PATIENT
  Age: 81 Year
  Sex: Female

DRUGS (19)
  1. TRESIBA [Concomitant]
     Active Substance: INSULIN DEGLUDEC
     Route: 065
     Dates: start: 2000
  2. TEMESTA (SWITZERLAND) [Concomitant]
     Active Substance: LORAZEPAM
     Dosage: AS NECESSARY
     Route: 065
     Dates: start: 20180422
  3. PALEXIA [Concomitant]
     Active Substance: TAPENTADOL HYDROCHLORIDE
     Dosage: AS NECESSARY
     Route: 065
     Dates: start: 20180604, end: 20180614
  4. LASIX [Concomitant]
     Active Substance: FUROSEMIDE
     Route: 065
     Dates: start: 20180525, end: 20180612
  5. PREGABALIN. [Concomitant]
     Active Substance: PREGABALIN
     Route: 065
     Dates: start: 2017
  6. ALDACTONE [Concomitant]
     Active Substance: SPIRONOLACTONE
     Route: 065
     Dates: start: 20170531
  7. IMPORTAL [Concomitant]
     Active Substance: LACTITOL
     Route: 065
     Dates: start: 20171214
  8. DAFALGAN [Concomitant]
     Active Substance: ACETAMINOPHEN
     Route: 065
     Dates: start: 20180531
  9. CALCIMAGON D3 [Concomitant]
     Active Substance: CALCIUM\CHOLECALCIFEROL
     Route: 065
     Dates: start: 2010
  10. PASPERTIN (SWITZERLAND) [Concomitant]
     Active Substance: METOCLOPRAMIDE HYDROCHLORIDE
     Dosage: AS NECESSARY
     Route: 065
     Dates: start: 20180501
  11. CELLCEPT [Suspect]
     Active Substance: MYCOPHENOLATE MOFETIL\MYCOPHENOLATE MOFETIL HYDROCHLORIDE
     Indication: PRODUCT USED FOR UNKNOWN INDICATION
     Route: 048
     Dates: start: 2016
  12. CLYSSIE [Concomitant]
     Dosage: AS NECESSARY
     Route: 065
     Dates: start: 20180506
  13. SINTROM [Concomitant]
     Active Substance: ACENOCOUMAROL
     Dosage: IN TOTAL
     Route: 065
     Dates: start: 20180511
  14. CYMBALTA [Concomitant]
     Active Substance: DULOXETINE HYDROCHLORIDE
     Route: 065
     Dates: start: 2017
  15. BELOC ZOK [Concomitant]
     Active Substance: METOPROLOL SUCCINATE
     Route: 065
     Dates: start: 20180515
  16. NOVORAPID [Concomitant]
     Active Substance: INSULIN ASPART
     Dosage: AS NECESSARY
     Route: 065
     Dates: start: 20180423
  17. LAXOBERON [Concomitant]
     Active Substance: SODIUM PICOSULFATE
     Route: 065
     Dates: start: 20180507
  18. NEXIUM [Concomitant]
     Active Substance: ESOMEPRAZOLE MAGNESIUM
     Route: 065
     Dates: start: 2017
  19. ENSURE PLUS ADVANCE [Concomitant]
     Route: 065
     Dates: start: 20180529

REACTIONS (1)
  - Muscular weakness [Not Recovered/Not Resolved]

NARRATIVE: CASE EVENT DATE: 201806
